FAERS Safety Report 5427053-6 (Version None)
Quarter: 2007Q3

REPORT INFORMATION
  Report Type: 
  Country: None (occurrence: None)
  Receive Date: 20070824
  Receipt Date: 20070824
  Transmission Date: 20080115
  Serious: Yes (Hospitalization)
  Sender: FDA-Public Use
  Company Number: None

PATIENT
  Sex: Male
  Weight: 48.7 kg

DRUGS (16)
  1. TACROLIMUS [Suspect]
     Indication: IMMUNOSUPPRESSION
     Dosage: 0.5 MG PO Q12H
     Route: 048
     Dates: start: 20070607, end: 20070608
  2. ALLOPURINOL [Concomitant]
  3. CALCIUM [Concomitant]
  4. CEFEPIME [Concomitant]
  5. DOCUSATE [Concomitant]
  6. INSULIN [Concomitant]
  7. ASPART [Concomitant]
  8. LACTULOSE [Concomitant]
  9. LANSOPRAZOLE [Concomitant]
  10. MORPHINE [Concomitant]
  11. M.V.I. [Concomitant]
  12. PANCRELIPASE [Concomitant]
  13. HUMALOG [Concomitant]
  14. PREDNISONE [Concomitant]
  15. BACTRIM [Concomitant]
  16. VORICONAZOLE [Concomitant]

REACTIONS (5)
  - B-CELL LYMPHOMA [None]
  - BRONCHOPULMONARY ASPERGILLOSIS [None]
  - DRUG LEVEL INCREASED [None]
  - TREMOR [None]
  - VISION BLURRED [None]
